FAERS Safety Report 4700807-7 (Version None)
Quarter: 2005Q2

REPORT INFORMATION
  Report Type: 
  Country: None (occurrence: None)
  Receive Date: 20050624
  Receipt Date: 20040525
  Transmission Date: 20051028
  Serious: No
  Sender: FDA-Public Use
  Company Number: 369105

PATIENT
  Age: 82 Year
  Sex: Female
  Weight: 83 kg

DRUGS (2)
  1. XELODA [Suspect]
     Indication: COLORECTAL CANCER
     Dates: start: 20040406, end: 20040701
  2. COUMADIN [Concomitant]

REACTIONS (1)
  - HYPOKALAEMIA [None]
